FAERS Safety Report 4763904-6 (Version None)
Quarter: 2005Q3

REPORT INFORMATION
  Report Type: 
  Country: None (occurrence: None)
  Receive Date: 20050906
  Receipt Date: 20050824
  Transmission Date: 20060218
  Serious: Yes (Hospitalization)
  Sender: FDA-Public Use
  Company Number: 2005SP002503

PATIENT
  Sex: 0

DRUGS (2)
  1. LUNESTA [Suspect]
     Dosage: 90 MG;1X; ORAL; 3 MG; ORAL
     Route: 048
     Dates: start: 20050101, end: 20050101
  2. LUNESTA [Suspect]
     Dosage: 90 MG;1X; ORAL; 3 MG; ORAL
     Route: 048
     Dates: start: 20050101

REACTIONS (2)
  - OVERDOSE [None]
  - RESPIRATORY ARREST [None]
